FAERS Safety Report 20862133 (Version 3)
Quarter: 2022Q3

REPORT INFORMATION
  Report Type: Spontaneous
  Country: US (occurrence: US)
  Receive Date: 20220523
  Receipt Date: 20220920
  Transmission Date: 20221027
  Serious: No
  Sender: FDA-Public Use
  Company Number: US-BRISTOL-MYERS SQUIBB COMPANY-2022-044751

PATIENT
  Age: 75 Year
  Sex: Female
  Weight: 112.04 kg

DRUGS (1)
  1. REVLIMID [Suspect]
     Active Substance: LENALIDOMIDE
     Indication: Plasma cell myeloma
     Dosage: 3W,1W OFF
     Route: 048
     Dates: start: 202201

REACTIONS (4)
  - Diarrhoea [Unknown]
  - Visual impairment [Unknown]
  - Hypoaesthesia [Unknown]
  - Nausea [Unknown]
